FAERS Safety Report 11686813 (Version 2)
Quarter: 2015Q4

REPORT INFORMATION
  Report Type: Spontaneous
  Country: CA (occurrence: CA)
  Receive Date: 20151030
  Receipt Date: 20151229
  Transmission Date: 20160304
  Serious: No
  Sender: FDA-Public Use
  Company Number: CA-009507513-1510CAN012010

PATIENT
  Age: 60 Year
  Sex: Female

DRUGS (11)
  1. RIBAVIRIN. [Suspect]
     Active Substance: RIBAVIRIN
     Dosage: 400 MG, AT NIGHT EACH DAY
     Route: 048
     Dates: start: 20121118, end: 2012
  2. PEGASYS [Suspect]
     Active Substance: PEGINTERFERON ALFA-2A
     Indication: HEPATITIS C
     Dosage: 180 MICROGRAM, 1 IN 1 WK
     Route: 058
     Dates: start: 20121118, end: 2012
  3. PEGASYS [Suspect]
     Active Substance: PEGINTERFERON ALFA-2A
     Dosage: 135 MICROGRAM, 1 IN 1 WK
     Route: 058
     Dates: start: 20121217
  4. ENDOCET [Concomitant]
     Active Substance: ACETAMINOPHEN\OXYCODONE HYDROCHLORIDE
     Indication: ANALGESIC THERAPY
     Dosage: UNK
  5. RIBAVIRIN. [Suspect]
     Active Substance: RIBAVIRIN
     Indication: HEPATITIS C
     Dosage: 600 MG, IN THE MORNING EACH DAY
     Route: 048
     Dates: start: 20121118, end: 2012
  6. RIBAVIRIN. [Suspect]
     Active Substance: RIBAVIRIN
     Dosage: 200 MG, 2 IN 1 D
     Route: 048
     Dates: start: 20121217
  7. BOCEPREVIR [Suspect]
     Active Substance: BOCEPREVIR
     Indication: HEPATITIS C
     Dosage: 800 MG, FREQUENCY NOT REPORTED
     Route: 048
     Dates: start: 20121227, end: 20130204
  8. RIBAVIRIN. [Suspect]
     Active Substance: RIBAVIRIN
     Dosage: 200 MG, AT BEDTIME EACH DAY
     Route: 048
     Dates: start: 20130204
  9. PEGASYS [Suspect]
     Active Substance: PEGINTERFERON ALFA-2A
     Dosage: 95 MICROGRAM, 1 IN 1 WK
     Route: 058
     Dates: start: 20130204
  10. BOCEPREVIR [Suspect]
     Active Substance: BOCEPREVIR
     Dosage: 800 MG, FREQUENCY NOT REPORTED
     Route: 048
     Dates: start: 20130506
  11. RIBAVIRIN. [Suspect]
     Active Substance: RIBAVIRIN
     Dosage: 400 MG, IN THE MORNING EACH DAY
     Route: 048
     Dates: start: 20130204

REACTIONS (8)
  - Headache [Recovered/Resolved]
  - Red blood cell count decreased [Unknown]
  - Haemoglobin decreased [Unknown]
  - Platelet count decreased [Unknown]
  - Haematocrit decreased [Unknown]
  - White blood cell count decreased [Unknown]
  - Neutrophil count decreased [Unknown]
  - Aspartate aminotransferase increased [Unknown]

NARRATIVE: CASE EVENT DATE: 20121119
